FAERS Safety Report 13871301 (Version 1)
Quarter: 2017Q3

REPORT INFORMATION
  Report Type: Spontaneous
  Country: US (occurrence: US)
  Receive Date: 20170816
  Receipt Date: 20170816
  Transmission Date: 20171127
  Serious: Yes (Death, Hospitalization, Other)
  Sender: FDA-Public Use
  Company Number: US-BAYER-2017-151930

PATIENT
  Age: 29 Year
  Sex: Male

DRUGS (2)
  1. ACETYLSALICYLIC ACID({=100 MG) [Suspect]
     Active Substance: ASPIRIN
     Indication: ANTIPLATELET THERAPY
     Dosage: UNK
  2. CLOPIDOGREL [Suspect]
     Active Substance: CLOPIDOGREL BISULFATE
     Indication: ANTIPLATELET THERAPY
     Dosage: UNK

REACTIONS (11)
  - Subarachnoid haemorrhage [Fatal]
  - Seizure [Fatal]
  - Headache [None]
  - Ventricular arrhythmia [Fatal]
  - Thunderclap headache [Fatal]
  - Labelled drug-drug interaction medication error [Fatal]
  - Loss of consciousness [Fatal]
  - Respiratory failure [Fatal]
  - Cerebral haemorrhage [Fatal]
  - Drug administration error [Fatal]
  - Carotid aneurysm rupture [Fatal]
